FAERS Safety Report 18384826 (Version 4)
Quarter: 2021Q1

REPORT INFORMATION
  Report Type: Spontaneous
  Country: US (occurrence: US)
  Receive Date: 20201014
  Receipt Date: 20210114
  Transmission Date: 20210419
  Serious: No
  Sender: FDA-Public Use
  Company Number: US-BLUEPRINT MEDICINES CORPORATION-SP-US-2020-001111

PATIENT
  Age: 59 Year
  Sex: Male

DRUGS (2)
  1. AYVAKIT [Suspect]
     Active Substance: AVAPRITINIB
     Dosage: 1 TABLET BY MOUTH DAILY FOR THREE (3) WEEKS AND THEN TAKE A BREAK FROM THE MEDICATION FOR ONE (1) WE
     Route: 048
     Dates: start: 20200917
  2. AYVAKIT [Suspect]
     Active Substance: AVAPRITINIB
     Indication: GASTROINTESTINAL STROMAL TUMOUR
     Dosage: 1 TABLET BY MOUTH DAILY FOR THREE (3) WEEKS AND THEN TAKE A BREAK FROM THE MEDICATION FOR ONE (1) WE
     Route: 048
     Dates: start: 20160801

REACTIONS (5)
  - Haemorrhage [Not Recovered/Not Resolved]
  - Rectal fissure [Recovered/Resolved]
  - Dehydration [Not Recovered/Not Resolved]
  - Diarrhoea [Recovered/Resolved]
  - Inappropriate schedule of product administration [Not Recovered/Not Resolved]

NARRATIVE: CASE EVENT DATE: 20200917
